FAERS Safety Report 6006068-3 (Version None)
Quarter: 2008Q4

REPORT INFORMATION
  Report Type: 
  Country: None (occurrence: None)
  Receive Date: 20081217
  Receipt Date: 20081205
  Transmission Date: 20090506
  Serious: Yes (Hospitalization)
  Sender: FDA-Public Use
  Company Number: BR-ELI_LILLY_AND_COMPANY-BR200811000395

PATIENT
  Age: 57 Year
  Sex: Female

DRUGS (5)
  1. BYETTA [Suspect]
     Indication: TYPE 2 DIABETES MELLITUS
     Dosage: UNK, UNKNOWN
     Route: 058
  2. GLIFAGE [Concomitant]
     Indication: DIABETES MELLITUS
     Dosage: 1500 MG, EACH MORNING
     Route: 065
  3. GLIFAGE [Concomitant]
     Dosage: 1500 MG, EACH EVENING
     Route: 065
  4. AMARYL [Concomitant]
     Indication: HYPERTENSION
     Dosage: 4 MG, EACH MORNING
     Route: 065
  5. VYTORIN [Concomitant]
     Indication: BLOOD CHOLESTEROL
     Dosage: UNK, EACH EVENING
     Route: 065

REACTIONS (1)
  - HYPERGLYCAEMIA [None]
